FAERS Safety Report 17583762 (Version 1)
Quarter: 2020Q1

REPORT INFORMATION
  Report Type: Spontaneous
  Country: FR (occurrence: FR)
  Receive Date: 20200326
  Receipt Date: 20200326
  Transmission Date: 20200409
  Serious: Yes (Hospitalization)
  Sender: FDA-Public Use
  Company Number: FR-TEVA-2020-FR-1209082

PATIENT
  Age: 7 Year
  Sex: Female
  Weight: 49 kg

DRUGS (6)
  1. CYTARABINE. [Concomitant]
     Active Substance: CYTARABINE
  2. VINCRISTINE TEVA [Suspect]
     Active Substance: VINCRISTINE
     Indication: ACUTE LYMPHOCYTIC LEUKAEMIA
     Dosage: 4.16MG
     Route: 040
     Dates: start: 20200116, end: 20200120
  3. HYDROCORTISONE. [Concomitant]
     Active Substance: HYDROCORTISONE
  4. METHOTREXATE. [Concomitant]
     Active Substance: METHOTREXATE
     Route: 037
  5. CERUBIDINE [Suspect]
     Active Substance: DAUNORUBICIN HYDROCHLORIDE
     Indication: ACUTE LYMPHOCYTIC LEUKAEMIA
     Dosage: 42MG
     Route: 041
     Dates: start: 20200121
  6. ONCASPAR [Suspect]
     Active Substance: PEGASPARGASE
     Indication: ACUTE LYMPHOCYTIC LEUKAEMIA
     Dosage: 3475IU
     Route: 041
     Dates: start: 20200120

REACTIONS (3)
  - Jaundice [Recovered/Resolved]
  - Hepatomegaly [Recovered/Resolved]
  - Hepatitis cholestatic [Recovering/Resolving]

NARRATIVE: CASE EVENT DATE: 20200205
